FAERS Safety Report 14974680 (Version 1)
Quarter: 2018Q2

REPORT INFORMATION
  Report Type: Spontaneous
  Country: GP (occurrence: GP)
  Receive Date: 20180605
  Receipt Date: 20180605
  Transmission Date: 20180711
  Serious: Yes (Other)
  Sender: FDA-Public Use
  Company Number: GP-BRISTOL-MYERS SQUIBB COMPANY-BMS-2018-050406

PATIENT
  Sex: Female

DRUGS (1)
  1. ELIQUIS [Suspect]
     Active Substance: APIXABAN
     Indication: EMBOLISM VENOUS
     Dosage: NOT AVAILABLE
     Route: 065

REACTIONS (1)
  - Thrombosis [Unknown]
